FAERS Safety Report 8773987 (Version 6)
Quarter: 2014Q4

REPORT INFORMATION
  Report Type: Spontaneous
  Country: US (occurrence: US)
  Receive Date: 20120908
  Receipt Date: 20141010
  Transmission Date: 20150529
  Serious: Yes (Hospitalization, Disabling, Other)
  Sender: FDA-Public Use
  Company Number: US-009507513-1208USA011472

PATIENT
  Sex: Female
  Weight: 72.56 kg

DRUGS (4)
  1. FOSAMAX [Suspect]
     Active Substance: ALENDRONATE SODIUM
     Dosage: 70 MG, UNK
     Route: 048
  2. BONIVA [Suspect]
     Active Substance: IBANDRONATE SODIUM
     Dosage: UNK
     Dates: start: 2002, end: 2009
  3. FOSAMAX [Suspect]
     Active Substance: ALENDRONATE SODIUM
     Dosage: UNK
     Route: 048
     Dates: start: 1998
  4. ALENDRONATE SODIUM. [Suspect]
     Active Substance: ALENDRONATE SODIUM
     Dosage: 70 MG, UNK
     Dates: start: 2009, end: 20100213

REACTIONS (28)
  - Intramedullary rod insertion [Not Recovered/Not Resolved]
  - Cataract operation [Unknown]
  - Hyperlipidaemia [Unknown]
  - Asthma [Unknown]
  - Impaired healing [Unknown]
  - Inflammatory bowel disease [Unknown]
  - Femur fracture [Unknown]
  - Blood potassium decreased [Unknown]
  - Depression [Not Recovered/Not Resolved]
  - Hypertension [Unknown]
  - Hypercholesterolaemia [Unknown]
  - Blood magnesium decreased [Unknown]
  - Transfusion [Unknown]
  - Arthritis [Not Recovered/Not Resolved]
  - Foot operation [Unknown]
  - Carpal tunnel decompression [Unknown]
  - Foot fracture [Unknown]
  - Femur fracture [Not Recovered/Not Resolved]
  - Haemorrhagic anaemia [Unknown]
  - Rotator cuff repair [Unknown]
  - Calcium deficiency [Unknown]
  - Osteoarthritis [Unknown]
  - Fracture [Unknown]
  - Anxiety disorder [Not Recovered/Not Resolved]
  - Low turnover osteopathy [Not Recovered/Not Resolved]
  - Intramedullary rod insertion [Not Recovered/Not Resolved]
  - Colitis ulcerative [Unknown]
  - Stress fracture [Unknown]

NARRATIVE: CASE EVENT DATE: 2000
